FAERS Safety Report 10057341 (Version 1)
Quarter: 2014Q2

REPORT INFORMATION
  Report Type: Spontaneous
  Country: LB (occurrence: LB)
  Receive Date: 20140403
  Receipt Date: 20140403
  Transmission Date: 20141212
  Serious: Yes (Hospitalization)
  Sender: FDA-Public Use
  Company Number: LB-ABBVIE-14P-093-1216841-00

PATIENT
  Age: 35 Year
  Sex: Female
  Weight: 52 kg

DRUGS (3)
  1. HUMIRA [Suspect]
     Indication: PRODUCT USED FOR UNKNOWN INDICATION
     Route: 058
     Dates: start: 20130328
  2. HUMIRA [Suspect]
     Dosage: LOADING DOSE
     Dates: start: 20131128, end: 20131128
  3. HUMIRA [Suspect]
     Route: 058

REACTIONS (4)
  - Intestinal obstruction [Unknown]
  - Gastrointestinal infection [Unknown]
  - Abdominal pain [Unknown]
  - Abdominal distension [Unknown]
